FAERS Safety Report 16768434 (Version 1)
Quarter: 2019Q3

REPORT INFORMATION
  Report Type: Spontaneous
  Country: NL (occurrence: NL)
  Receive Date: 20190903
  Receipt Date: 20190903
  Transmission Date: 20191005
  Serious: Yes (Hospitalization)
  Sender: FDA-Public Use
  Company Number: NL-MYLANLABS-2019M1081916

PATIENT
  Age: 70 Year
  Sex: Male

DRUGS (10)
  1. FUROSEMIDE. [Concomitant]
     Active Substance: FUROSEMIDE
     Dosage: 1 X PER DAG 1 STUK
     Route: 048
  2. METOPROLOL                         /00376903/ [Concomitant]
     Active Substance: METOPROLOL SUCCINATE
     Dosage: 1 X PER DAG 0,5 STUK
     Route: 048
  3. ROSUVASTATINE                      /01588601/ [Concomitant]
     Active Substance: ROSUVASTATIN
     Dosage: 1 X PER DAG 1 STUK
     Route: 048
  4. ACETYLSALICYLZUUR [Concomitant]
     Active Substance: ASPIRIN
     Dosage: 1 X PER DAG 1 STUK
     Route: 048
  5. COLCHICINE. [Concomitant]
     Active Substance: COLCHICINE
     Dosage: ZO NODIG 1 X PER DAG 1 STUK EM ZO NODIG
     Route: 048
  6. ALLOPURINOL. [Concomitant]
     Active Substance: ALLOPURINOL
     Dosage: 1 X PER DAG 2 STUK
     Route: 048
  7. ALFACALCIDOL [Concomitant]
     Active Substance: ALFACALCIDOL
     Dosage: 1 X PER DAG 1 STUK
     Route: 048
  8. PANTOPRAZOLE [Suspect]
     Active Substance: PANTOPRAZOLE
     Indication: DUODENAL ULCER
     Dosage: 40 MILLIGRAM, QD/ 1D1
     Route: 048
     Dates: start: 20071201, end: 20190326
  9. ISOSORBIDEDINITRAAT [Concomitant]
     Dosage: ZO NODIG 1 X PER DAG 1 STUK ZO NODIG
     Route: 060
  10. TIMOLOL. [Concomitant]
     Active Substance: TIMOLOL
     Dosage: 2 X PER DAG 1 DRUPPEL
     Route: 047

REACTIONS (2)
  - Hypocalcaemia [Recovering/Resolving]
  - Hypomagnesaemia [Recovering/Resolving]

NARRATIVE: CASE EVENT DATE: 20180719
